FAERS Safety Report 9388960 (Version 1)
Quarter: 2013Q3

REPORT INFORMATION
  Report Type: Spontaneous
  Country: US (occurrence: US)
  Receive Date: 20130708
  Receipt Date: 20130708
  Transmission Date: 20140515
  Serious: Yes (Other)
  Sender: FDA-Public Use
  Company Number: US-PFIZER INC-2013201062

PATIENT
  Sex: Female
  Weight: 92 kg

DRUGS (6)
  1. LYRICA [Suspect]
     Indication: FIBROMYALGIA
     Dosage: 150 MG
  2. HYDROCODONE [Concomitant]
     Indication: FIBROMYALGIA
     Dosage: 10/325 MG, 4X/DAY
  3. HYDROCODONE [Concomitant]
     Indication: RHEUMATOID ARTHRITIS
  4. TRAMADOL [Concomitant]
     Indication: FIBROMYALGIA
     Dosage: 50 MG, 4X/DAY
  5. TRAMADOL [Concomitant]
     Indication: RHEUMATOID ARTHRITIS
  6. ZITHROMAX [Concomitant]
     Dosage: UNK

REACTIONS (4)
  - Weight increased [Not Recovered/Not Resolved]
  - Arthralgia [Unknown]
  - Back pain [Unknown]
  - Pain in extremity [Unknown]
